FAERS Safety Report 5849097-2 (Version None)
Quarter: 2008Q3

REPORT INFORMATION
  Report Type: 
  Country: None (occurrence: None)
  Receive Date: 20080819
  Receipt Date: 20080814
  Transmission Date: 20090109
  Serious: Yes (Hospitalization)
  Sender: FDA-Public Use
  Company Number: PHHY2008ES18115

PATIENT

DRUGS (2)
  1. TEGRETOL-XR [Suspect]
     Dosage: 400 MG 4 TABLETS
     Route: 048
  2. TEGRETOL [Suspect]
     Dosage: 400 MG 4 TABLETS

REACTIONS (5)
  - ANTICONVULSANT DRUG LEVEL INCREASED [None]
  - ASTHENIA [None]
  - GAIT DISTURBANCE [None]
  - INTENTIONAL OVERDOSE [None]
  - LOSS OF CONSCIOUSNESS [None]
